FAERS Safety Report 9648064 (Version 2)
Quarter: 2015Q1

REPORT INFORMATION
  Report Type: Spontaneous
  Country: US (occurrence: US)
  Receive Date: 20131028
  Receipt Date: 20150114
  Transmission Date: 20150721
  Serious: No
  Sender: FDA-Public Use
  Company Number: US-PFIZER INC-2013304958

PATIENT
  Age: 48 Year
  Sex: Female

DRUGS (5)
  1. PROZAC [Suspect]
     Active Substance: FLUOXETINE HYDROCHLORIDE
     Dosage: UNK
  2. NEURONTIN [Suspect]
     Active Substance: GABAPENTIN
     Dosage: UNK
  3. ATIVAN [Suspect]
     Active Substance: LORAZEPAM
     Dosage: UNK
  4. LEVAQUIN [Suspect]
     Active Substance: LEVOFLOXACIN
     Dosage: UNK
  5. INDOMETHACIN. [Suspect]
     Active Substance: INDOMETHACIN
     Dosage: UNK

REACTIONS (1)
  - Drug hypersensitivity [Unknown]
